FAERS Safety Report 9735789 (Version 2)
Quarter: 2015Q3

REPORT INFORMATION
  Report Type: Spontaneous
  Country: US (occurrence: US)
  Receive Date: 20131206
  Receipt Date: 20150804
  Transmission Date: 20151125
  Serious: No
  Sender: FDA-Public Use
  Company Number: US-GILEAD-2009-0023121

PATIENT
  Age: 76 Year
  Sex: Female
  Weight: 63.05 kg

DRUGS (16)
  1. TOPROL XL [Concomitant]
     Active Substance: METOPROLOL SUCCINATE
  2. PREVACID [Concomitant]
     Active Substance: LANSOPRAZOLE
  3. MIRAPEX [Concomitant]
     Active Substance: PRAMIPEXOLE DIHYDROCHLORIDE
  4. PROVENTIL [Concomitant]
     Active Substance: ALBUTEROL
  5. ADVAIR HFA [Concomitant]
     Active Substance: FLUTICASONE PROPIONATE\SALMETEROL XINAFOATE
  6. HYDROCHLOROTHIAZIDE/LOSARTAN POTASSIUM [Concomitant]
  7. OXYGEN. [Concomitant]
     Active Substance: OXYGEN
  8. TUMS [Concomitant]
     Active Substance: CALCIUM CARBONATE
  9. APPUREX [Concomitant]
  10. WARFARIN [Concomitant]
     Active Substance: WARFARIN
  11. ZERAMYST NASAL [Concomitant]
  12. LASIX [Concomitant]
     Active Substance: FUROSEMIDE
  13. DIAZEPAM. [Concomitant]
     Active Substance: DIAZEPAM
  14. LETAIRIS [Suspect]
     Active Substance: AMBRISENTAN
     Indication: PULMONARY ARTERIAL HYPERTENSION
     Route: 048
     Dates: start: 20090224
  15. FLECAINIDE ACETATE. [Concomitant]
     Active Substance: FLECAINIDE ACETATE
  16. VITAMIN A+D [Concomitant]

REACTIONS (1)
  - Oedema [Unknown]
